FAERS Safety Report 19169315 (Version 2)
Quarter: 2021Q2

REPORT INFORMATION
  Report Type: Report from Study
  Country: AU (occurrence: AU)
  Receive Date: 20210422
  Receipt Date: 20210430
  Transmission Date: 20210717
  Serious: Yes (Death, Hospitalization)
  Sender: FDA-Public Use
  Company Number: AU-TG THERAPEUTICS INC.-TGT001889

PATIENT

DRUGS (4)
  1. TG?1701 [Suspect]
     Active Substance: INVESTIGATIONAL PRODUCT
     Indication: MARGINAL ZONE LYMPHOMA
     Dosage: 300 MILLIGRAM, QD
     Route: 048
     Dates: start: 20210225, end: 20210331
  2. UBLITUXIMAB [Suspect]
     Active Substance: UBLITUXIMAB
     Indication: MARGINAL ZONE LYMPHOMA
     Dosage: 900 MILLIGRAM
     Route: 042
     Dates: start: 20210225, end: 20210225
  3. UMBRALISIB [Suspect]
     Active Substance: UMBRALISIB
     Indication: MARGINAL ZONE LYMPHOMA
     Dosage: 600MG, QD
     Route: 048
     Dates: start: 20210225, end: 20210331
  4. RIVAROXABAN [Concomitant]
     Active Substance: RIVAROXABAN
     Indication: ATRIAL FIBRILLATION
     Dosage: 20 MILLIGRAM, QD
     Route: 048
     Dates: start: 201601, end: 20210331

REACTIONS (1)
  - Disease progression [Fatal]

NARRATIVE: CASE EVENT DATE: 20210330
